FAERS Safety Report 15501528 (Version 1)
Quarter: 2018Q4

REPORT INFORMATION
  Report Type: Spontaneous
  Country: US (occurrence: US)
  Receive Date: 20181015
  Receipt Date: 20181015
  Transmission Date: 20190205
  Serious: No
  Sender: FDA-Public Use
  Company Number: US-BIOGEN-2018BI00645236

PATIENT
  Age: 32 Year
  Sex: Female
  Weight: 108.96 kg

DRUGS (1)
  1. TECFIDERA [Suspect]
     Active Substance: DIMETHYL FUMARATE
     Indication: MULTIPLE SCLEROSIS
     Dosage: MAINTENANCE DOSE
     Route: 048
     Dates: start: 20181008

REACTIONS (1)
  - Product dose omission [Unknown]

NARRATIVE: CASE EVENT DATE: 20181008
